FAERS Safety Report 10517764 (Version 2)
Quarter: 2015Q2

REPORT INFORMATION
  Report Type: Report from Study
  Country: BR (occurrence: BR)
  Receive Date: 20141014
  Receipt Date: 20150402
  Transmission Date: 20150821
  Serious: Yes (Other)
  Sender: FDA-Public Use
  Company Number: BR-GLAXOSMITHKLINE-BR2014GSK004356

PATIENT
  Age: 58 Year
  Sex: Female
  Weight: 73 kg

DRUGS (9)
  1. OMEPRAZOLE. [Concomitant]
     Active Substance: OMEPRAZOLE
     Indication: GASTRITIS
     Dosage: 20 MG, UNK
     Route: 048
  2. RYTMONORM [Suspect]
     Active Substance: PROPAFENONE
     Dosage: 150 MG, TID
     Route: 048
     Dates: start: 201412
  3. SYNTHROID [Suspect]
     Active Substance: LEVOTHYROXINE SODIUM
     Indication: HYPOTHYROIDISM
     Dosage: 150 UG, QD
     Route: 048
  4. TIBOLONE [Concomitant]
     Active Substance: TIBOLONE
     Indication: MENOPAUSE
     Dosage: 1 DF, UNK
  5. CALCIUM [Concomitant]
     Active Substance: CALCIUM
     Indication: CALCIUM DEFICIENCY
     Dosage: 1 DF, QD
  6. RYTMONORM [Suspect]
     Active Substance: PROPAFENONE
     Dosage: 150 MG, BID
     Route: 048
     Dates: start: 2011
  7. RIVOTRIL [Concomitant]
     Active Substance: CLONAZEPAM
     Dosage: 5 GTT, UNK
     Route: 048
  8. CENTRUM [Concomitant]
     Active Substance: VITAMINS
     Dosage: 1 DF, UNK
  9. CITONEURIN [Concomitant]
     Active Substance: CYANOCOBALAMIN\PYRIDOXINE HYDROCHLORIDE\THIAMINE
     Indication: MINERAL SUPPLEMENTATION
     Dosage: UNK

REACTIONS (4)
  - Cardiac assistance device user [Unknown]
  - Cardiac fibrillation [Unknown]
  - Atrial fibrillation [Unknown]
  - Syncope [Unknown]

NARRATIVE: CASE EVENT DATE: 201309
